FAERS Safety Report 4792084-6 (Version None)
Quarter: 2005Q4

REPORT INFORMATION
  Report Type: 
  Country: None (occurrence: None)
  Receive Date: 20051007
  Receipt Date: 20050621
  Transmission Date: 20060501
  Serious: Yes (Other)
  Sender: FDA-Public Use
  Company Number: CA-MERCK-0506CAN00200

PATIENT
  Sex: Female

DRUGS (12)
  1. VIOXX [Suspect]
     Route: 048
  2. VIOXX [Suspect]
     Route: 048
  3. AMITRIPTYLINE HYDROCHLORIDE [Concomitant]
     Route: 065
  4. AMITRIPTYLINE HYDROCHLORIDE [Concomitant]
     Route: 065
  5. ESTROGENS, CONJUGATED [Concomitant]
     Route: 065
  6. ESTROGENS, CONJUGATED [Concomitant]
     Route: 065
  7. ASPIRIN [Concomitant]
     Route: 065
  8. ISOSORBIDE DINITRATE [Concomitant]
     Indication: CHEST DISCOMFORT
     Route: 060
  9. ATENOLOL [Concomitant]
     Route: 065
  10. ATENOLOL [Concomitant]
     Route: 065
  11. CLOPIDOGREL BISULFATE [Concomitant]
     Route: 065
  12. OMEPRAZOLE MAGNESIUM [Concomitant]
     Route: 065

REACTIONS (2)
  - MYOCARDIAL INFARCTION [None]
  - POLYTRAUMATISM [None]
